FAERS Safety Report 14402229 (Version 6)
Quarter: 2018Q4

REPORT INFORMATION
  Report Type: Spontaneous
  Country: FR (occurrence: FR)
  Receive Date: 20180117
  Receipt Date: 20180828
  Transmission Date: 20190204
  Serious: Yes (Disabling)
  Sender: FDA-Public Use
  Company Number: FR-TEVA-2017-FR-841742

PATIENT
  Age: 32 Year
  Sex: Male

DRUGS (57)
  1. TEMERIT [Suspect]
     Active Substance: NEBIVOLOL
     Dosage: 2 DOSAGE FORMS DAILY;
     Route: 048
     Dates: start: 20101115, end: 20110509
  2. CLONAZEPAM. [Suspect]
     Active Substance: CLONAZEPAM
     Route: 065
     Dates: start: 20110303, end: 20110327
  3. CLONAZEPAM. [Suspect]
     Active Substance: CLONAZEPAM
     Dosage: 5 - 8 DROPS
     Route: 065
     Dates: start: 20110219, end: 20110302
  4. CLONAZEPAM. [Suspect]
     Active Substance: CLONAZEPAM
     Route: 065
     Dates: start: 20110718
  5. MIOREL [Concomitant]
     Dosage: 1 DOSAGE FORMS DAILY;
     Route: 048
     Dates: start: 20110201
  6. SOLUPRED (PREDNISOLONE SODIUM METAZOATE) [Concomitant]
     Active Substance: PREDNISOLONE SODIUM METAZOATE
     Route: 048
     Dates: start: 20110726
  7. PRAXINOR [Concomitant]
     Dosage: 2 DOSAGE FORMS DAILY;
     Route: 048
     Dates: start: 20101127
  8. PARACETAMOL [Concomitant]
     Active Substance: ACETAMINOPHEN
     Dosage: 1 DOSAGE FORMS DAILY;
     Dates: start: 20101213
  9. THIOCOLCHICOSIDE [Concomitant]
     Active Substance: THIOCOLCHICOSIDE
     Dosage: 1 DOSAGE FORMS DAILY;
     Dates: start: 20110201
  10. ETIFOXINE [Concomitant]
     Active Substance: ETIFOXINE
  11. TETRAZEPAM [Suspect]
     Active Substance: TETRAZEPAM
     Route: 048
     Dates: start: 20110705
  12. SEROPRAM (CITALOPRAM HYDROBROMIDE) [Suspect]
     Active Substance: CITALOPRAM HYDROBROMIDE
     Route: 048
     Dates: start: 20110318
  13. LAROXYL [Suspect]
     Active Substance: AMITRIPTYLINE HYDROCHLORIDE
     Indication: NECK PAIN
     Dosage: 5-8 DROPS
     Route: 065
     Dates: start: 20110219
  14. DOLIPRANE [Concomitant]
     Active Substance: ACETAMINOPHEN
     Dosage: 1 DOSAGE FORMS DAILY;
     Route: 048
     Dates: start: 20101213
  15. MIOREL [Concomitant]
     Dosage: 1 DOSAGE FORMS DAILY;
     Route: 048
     Dates: start: 20101213
  16. COVATINE [Concomitant]
     Active Substance: CAPTODIAME HYDROCHLORIDE
     Route: 048
     Dates: start: 20120620, end: 201207
  17. PARACETAMOL [Concomitant]
     Active Substance: ACETAMINOPHEN
     Dosage: 1 DOSAGE FORMS DAILY;
     Dates: start: 20110328
  18. RIVOTRIL [Suspect]
     Active Substance: CLONAZEPAM
     Dosage: 5-8 DROPS
     Route: 065
     Dates: start: 20110219, end: 20110302
  19. TEMERIT [Suspect]
     Active Substance: NEBIVOLOL
     Indication: CARDIAC DISORDER
     Dosage: 2 DOSAGE FORMS DAILY;
     Route: 048
     Dates: start: 20110718, end: 201207
  20. DEXTROPROPOXYPHENE, PARACETAMOL [Suspect]
     Active Substance: ACETAMINOPHEN\PROPOXYPHENE
     Indication: PAIN
     Route: 065
     Dates: start: 20100606
  21. UVEDOSE [Concomitant]
     Active Substance: CHOLECALCIFEROL
     Dosage: 1000000 IU
     Route: 065
     Dates: start: 20110219
  22. NUREFLEX [Concomitant]
     Active Substance: IBUPROFEN
     Route: 048
     Dates: start: 20101213
  23. CAPTODIAME HYDROCHLORIDE [Concomitant]
     Active Substance: CAPTODIAME HYDROCHLORIDE
     Dates: start: 20120620
  24. ETHANOLAMINE ACETYLLEUCINATE [Concomitant]
     Dosage: 3 DOSAGE FORMS DAILY;
     Dates: start: 20110303
  25. DI-ANTALVIC [Suspect]
     Active Substance: ACETAMINOPHEN\PROPOXYPHENE HYDROCHLORIDE
     Indication: PAIN
     Route: 048
     Dates: start: 20100606
  26. ATARAX [Suspect]
     Active Substance: HYDROXYZINE HYDROCHLORIDE
     Route: 048
     Dates: start: 20120131, end: 201207
  27. CLONAZEPAM. [Suspect]
     Active Substance: CLONAZEPAM
     Route: 065
     Dates: start: 20110510
  28. PARACETAMOL [Concomitant]
     Active Substance: ACETAMINOPHEN
     Dosage: 1 DOSAGE FORMS DAILY;
     Dates: start: 20110201
  29. DIAZEPAM. [Concomitant]
     Active Substance: DIAZEPAM
     Route: 065
     Dates: start: 20101115, end: 20101115
  30. CAFEDRINE HYDROCHLORIDE/THEODRENALINE HYDROCHLORIDE [Concomitant]
     Dosage: 2 DOSAGE FORMS DAILY;
     Dates: start: 20101127
  31. TETRAZEPAM [Suspect]
     Active Substance: TETRAZEPAM
     Route: 048
     Dates: start: 20110228
  32. RIVOTRIL [Suspect]
     Active Substance: CLONAZEPAM
     Indication: NECK PAIN
     Route: 065
     Dates: start: 20110718, end: 201110
  33. RIVOTRIL [Suspect]
     Active Substance: CLONAZEPAM
     Dosage: 5-8 DROPS
     Route: 065
     Dates: start: 20110328
  34. DOLIPRANE [Concomitant]
     Active Substance: ACETAMINOPHEN
     Dosage: 1 DOSAGE FORMS DAILY;
     Route: 048
     Dates: start: 20110328
  35. MIOREL [Concomitant]
     Dosage: 1 DOSAGE FORMS DAILY;
     Route: 048
     Dates: start: 20101210
  36. TANGANIL [Concomitant]
     Active Substance: ACETYLLEUCINE
     Dosage: 3 DOSAGE FORMS DAILY;
     Route: 048
     Dates: start: 20110303
  37. THIOCOLCHICOSIDE [Concomitant]
     Active Substance: THIOCOLCHICOSIDE
     Dosage: 1 DOSAGE FORMS DAILY;
     Dates: start: 20101213
  38. THIOCOLCHICOSIDE [Concomitant]
     Active Substance: THIOCOLCHICOSIDE
     Dosage: 1 DOSAGE FORMS DAILY;
     Dates: start: 20101210
  39. THIOCOLCHICOSIDE [Concomitant]
     Active Substance: THIOCOLCHICOSIDE
     Dosage: 1 DOSAGE FORMS DAILY;
     Dates: start: 20100606
  40. COLECALCIFEROL [Concomitant]
     Active Substance: CHOLECALCIFEROL
     Dosage: 1000000 IU
     Dates: start: 20110219
  41. RIVOTRIL [Suspect]
     Active Substance: CLONAZEPAM
     Route: 065
     Dates: start: 20110510
  42. DOLIPRANE [Concomitant]
     Active Substance: ACETAMINOPHEN
     Dosage: 1 DOSAGE FORMS DAILY;
     Route: 048
     Dates: start: 20110201
  43. MIOREL [Concomitant]
     Dosage: 1 DOSAGE FORMS DAILY;
     Route: 048
     Dates: start: 20100606
  44. VALIUM [Concomitant]
     Active Substance: DIAZEPAM
     Route: 051
     Dates: start: 20101115, end: 20101115
  45. TETRAZEPAM [Suspect]
     Active Substance: TETRAZEPAM
     Route: 048
     Dates: start: 20110726
  46. HYDROXYZINE [Suspect]
     Active Substance: HYDROXYZINE HYDROCHLORIDE
     Route: 065
     Dates: start: 20120131
  47. RIVOTRIL [Suspect]
     Active Substance: CLONAZEPAM
     Route: 065
     Dates: start: 20110303, end: 20110327
  48. TEMERIT [Suspect]
     Active Substance: NEBIVOLOL
     Dosage: 2 DOSAGE FORMS DAILY;
     Route: 048
     Dates: start: 20110510, end: 201207
  49. IXEL [Suspect]
     Active Substance: MILNACIPRAN HYDROCHLORIDE
     Indication: PANIC ATTACK
     Dosage: 2 DOSAGE FORMS DAILY;
     Route: 048
     Dates: start: 20110322
  50. MILNACIPRAN [Suspect]
     Active Substance: MILNACIPRAN
     Indication: PANIC ATTACK
     Dosage: 2 DOSAGE FORMS DAILY;
     Route: 065
     Dates: start: 20110322
  51. STRESAM [Concomitant]
     Active Substance: ETIFOXINE
     Route: 048
     Dates: start: 20120327
  52. PREDNISOLONE. [Concomitant]
     Active Substance: PREDNISOLONE
     Dates: start: 20110726
  53. IBUPROFEN. [Concomitant]
     Active Substance: IBUPROFEN
     Dates: start: 20101213
  54. PAROXETINE. [Suspect]
     Active Substance: PAROXETINE
     Dosage: 2 TO 3 WEEKS
     Route: 048
     Dates: start: 20110201
  55. CITALOPRAM [Suspect]
     Active Substance: CITALOPRAM HYDROBROMIDE
     Route: 065
     Dates: start: 20110318
  56. CLONAZEPAM. [Suspect]
     Active Substance: CLONAZEPAM
     Indication: NECK PAIN
     Dosage: 5-4 DROPS
     Route: 065
     Dates: start: 20110328
  57. AMITRIPTYLINE HYDROCHLORIDE. [Suspect]
     Active Substance: AMITRIPTYLINE HYDROCHLORIDE
     Indication: NECK PAIN
     Dosage: 5-8 DROPS
     Route: 065
     Dates: start: 20110219

REACTIONS (24)
  - Post-traumatic stress disorder [Recovered/Resolved]
  - Dyspnoea [Unknown]
  - Hypoacusis [Recovered/Resolved]
  - Psychotic disorder [Recovered/Resolved]
  - Erectile dysfunction [Recovering/Resolving]
  - Asthenia [Unknown]
  - Tinnitus [Recovered/Resolved]
  - Panic attack [Recovered/Resolved]
  - Intervertebral disc disorder [Unknown]
  - Hallucination, auditory [Recovered/Resolved]
  - Neurosis [Recovered/Resolved]
  - Malaise [Recovered/Resolved]
  - Tachycardia [Recovered/Resolved]
  - Pain in extremity [Unknown]
  - Hypertonia [Unknown]
  - Memory impairment [Recovered/Resolved]
  - Anxiety [Recovered/Resolved]
  - Drug intolerance [Recovering/Resolving]
  - Visual impairment [Recovered/Resolved]
  - Suicidal ideation [Recovered/Resolved]
  - Adverse event [Unknown]
  - Musculoskeletal pain [Unknown]
  - Personal relationship issue [Recovered/Resolved]
  - Agoraphobia [Recovered/Resolved]

NARRATIVE: CASE EVENT DATE: 2010
